FAERS Safety Report 5054161-4 (Version None)
Quarter: 2006Q3

REPORT INFORMATION
  Report Type: 
  Country: None (occurrence: None)
  Receive Date: 20060713
  Receipt Date: 20060626
  Transmission Date: 20061208
  Serious: Yes (Hospitalization, Other)
  Sender: FDA-Public Use
  Company Number: 2005-02473

PATIENT
  Age: 64 Year
  Sex: Male
  Weight: 72 kg

DRUGS (9)
  1. VELCADE [Suspect]
     Indication: MULTIPLE MYELOMA
     Dosage: 1.30 MG/M2, INTRAVENOUS
     Route: 042
     Dates: start: 20051014, end: 20051114
  2. DOXIL [Suspect]
     Indication: MULTIPLE MYELOMA
     Dosage: 50.00 MG/M2, SINGLE, INTRAVENOUS
     Route: 042
     Dates: start: 20051017, end: 20051107
  3. FUROSEMIDE [Concomitant]
  4. ALLOPURINOL [Concomitant]
  5. SIMVASTATIN [Concomitant]
  6. CODEINE (CODEINE) [Concomitant]
  7. CETIRIZINE (CETIRIZINE) [Concomitant]
  8. LOPERAMIDE HCL [Concomitant]
  9. TORECAN [Concomitant]

REACTIONS (12)
  - ASTHENIA [None]
  - DEHYDRATION [None]
  - ERYTHEMA MULTIFORME [None]
  - FATIGUE [None]
  - FLUID INTAKE REDUCED [None]
  - HERPES ZOSTER [None]
  - HYPONATRAEMIA [None]
  - HYPOTENSION [None]
  - NAUSEA [None]
  - ORTHOSTATIC HYPOTENSION [None]
  - PALMAR-PLANTAR ERYTHRODYSAESTHESIA SYNDROME [None]
  - SYNCOPE [None]
